FAERS Safety Report 13971801 (Version 1)
Quarter: 2017Q3

REPORT INFORMATION
  Report Type: Spontaneous
  Country: US (occurrence: US)
  Receive Date: 20170914
  Receipt Date: 20170914
  Transmission Date: 20171128
  Serious: Yes (Other)
  Sender: FDA-Public Use
  Company Number: None

PATIENT
  Age: 36 Year
  Sex: Male
  Weight: 64.8 kg

DRUGS (1)
  1. VANCOMYCIN HCL [Suspect]
     Active Substance: VANCOMYCIN HYDROCHLORIDE
     Indication: DECUBITUS ULCER
     Dosage: ?          OTHER FREQUENCY:EVERY 8 HOURS;?
     Route: 041
     Dates: start: 20170821, end: 20170914

REACTIONS (4)
  - White blood cell count decreased [None]
  - Therapy change [None]
  - Blood creatinine increased [None]
  - Drug level below therapeutic [None]

NARRATIVE: CASE EVENT DATE: 20170911
